FAERS Safety Report 8287275-6 (Version None)
Quarter: 2012Q2

REPORT INFORMATION
  Report Type: 
  Country: None (occurrence: None)
  Receive Date: 20120416
  Receipt Date: 20120416
  Transmission Date: 20120825
  Serious: Yes (Disabling)
  Sender: FDA-Public Use
  Company Number: None

PATIENT
  Age: 50 Year
  Sex: Female
  Weight: 68.038 kg

DRUGS (1)
  1. NEOMYCIN AND POLYMYXIN B SULFATE [Suspect]
     Indication: EYE INFECTION BACTERIAL
     Dosage: TWO DROPS
     Route: 031
     Dates: start: 20120405, end: 20120409

REACTIONS (6)
  - EYE SWELLING [None]
  - EYE IRRITATION [None]
  - EYE PAIN [None]
  - DRY SKIN [None]
  - OCULAR HYPERAEMIA [None]
  - RASH ERYTHEMATOUS [None]
